FAERS Safety Report 9578279 (Version 1)
Quarter: 2013Q4

REPORT INFORMATION
  Report Type: Spontaneous
  Country: US (occurrence: US)
  Receive Date: 20131001
  Receipt Date: 20131001
  Transmission Date: 20140711
  Serious: No
  Sender: FDA-Public Use
  Company Number: US-AMGEN-USASP2013011907

PATIENT
  Age: 48 Year
  Sex: Female
  Weight: 52.15 kg

DRUGS (8)
  1. ENBREL [Suspect]
     Indication: PRODUCT USED FOR UNKNOWN INDICATION
     Dosage: 50 MG, QWK
     Route: 058
  2. RECLAST [Concomitant]
     Dosage: 5/100 ML
  3. METHOTREXATE [Concomitant]
     Dosage: 2.5 MG, UNK
  4. FOLIC ACID [Concomitant]
     Dosage: 1 MG, UNK
  5. CALCIUM 600 [Concomitant]
     Dosage: UNK
  6. GLUCO + CHONDROITIN [Concomitant]
     Dosage: 500 COMP
  7. MELOXICAM [Concomitant]
     Dosage: 7.5 MG, UNK
  8. MULTIVITAMINS, PLAIN [Concomitant]
     Dosage: UNK

REACTIONS (1)
  - Injection site rash [Unknown]
